FAERS Safety Report 9073796 (Version 1)
Quarter: 2013Q1

REPORT INFORMATION
  Report Type: Spontaneous
  Country: BE (occurrence: BE)
  Receive Date: 20130129
  Receipt Date: 20130129
  Transmission Date: 20140127
  Serious: Yes (Other)
  Sender: FDA-Public Use
  Company Number: BE-UCBSA-076586

PATIENT
  Sex: 0

DRUGS (1)
  1. VIMPAT [Suspect]
     Indication: CONVULSION

REACTIONS (1)
  - Metabolic encephalopathy [Unknown]
